FAERS Safety Report 21025198 (Version 4)
Quarter: 2022Q4

REPORT INFORMATION
  Report Type: Report from Study
  Country: US (occurrence: US)
  Receive Date: 20220630
  Receipt Date: 20221020
  Transmission Date: 20230113
  Serious: Yes (Other)
  Sender: FDA-Public Use
  Company Number: US-ABBVIE-22K-163-4451208-00

PATIENT
  Sex: Male

DRUGS (1)
  1. HUMIRA [Suspect]
     Active Substance: ADALIMUMAB
     Indication: Rheumatoid arthritis
     Dosage: 40MG/0.4ML CF
     Route: 058

REACTIONS (2)
  - Inguinal hernia [Unknown]
  - Orchitis [Unknown]
